FAERS Safety Report 11218837 (Version 2)
Quarter: 2017Q1

REPORT INFORMATION
  Report Type: Spontaneous
  Country: US (occurrence: US)
  Receive Date: 20150625
  Receipt Date: 20170307
  Transmission Date: 20170428
  Serious: Yes (Other)
  Sender: FDA-Public Use
  Company Number: US-ELI_LILLY_AND_COMPANY-US201506006774

PATIENT
  Sex: Male
  Weight: 80 kg

DRUGS (3)
  1. CYMBALTA [Suspect]
     Active Substance: DULOXETINE HYDROCHLORIDE
     Indication: DEPRESSION
     Dosage: UNK, UNKNOWN
     Route: 065
     Dates: start: 201210, end: 201304
  2. CYMBALTA [Suspect]
     Active Substance: DULOXETINE HYDROCHLORIDE
     Indication: ANXIETY
     Dosage: 30 MG, TID
     Route: 048
     Dates: start: 20121210
  3. CYMBALTA [Suspect]
     Active Substance: DULOXETINE HYDROCHLORIDE
     Indication: PAIN
     Dosage: 30 MG, BID
     Route: 048
     Dates: start: 201005, end: 201210

REACTIONS (22)
  - Headache [Unknown]
  - Hyperhidrosis [Unknown]
  - Paraesthesia [Unknown]
  - Pain [Unknown]
  - Anxiety [Unknown]
  - Agitation [Unknown]
  - Vertigo [Unknown]
  - Intentional product misuse [Unknown]
  - Drug withdrawal syndrome [Unknown]
  - Diarrhoea [Unknown]
  - Irritability [Unknown]
  - Dizziness [Unknown]
  - Nausea [Unknown]
  - Hypomania [Unknown]
  - Affect lability [Unknown]
  - Lethargy [Unknown]
  - Insomnia [Unknown]
  - Fatigue [Unknown]
  - Confusional state [Unknown]
  - Vomiting [Unknown]
  - Dysphoria [Unknown]
  - Tinnitus [Unknown]
